FAERS Safety Report 7328857-5 (Version None)
Quarter: 2011Q1

REPORT INFORMATION
  Report Type: 
  Country: None (occurrence: None)
  Receive Date: 20110225
  Receipt Date: 20110225
  Transmission Date: 20110831
  Serious: Yes (Hospitalization)
  Sender: FDA-Public Use
  Company Number: None

PATIENT
  Age: 53 Year
  Sex: Female

DRUGS (4)
  1. RISPERDAL [Suspect]
     Indication: SCHIZOAFFECTIVE DISORDER
     Dosage: 2 MG 1QD PO
     Route: 048
     Dates: start: 20100901, end: 20110222
  2. RISPERDAL [Suspect]
     Indication: HALLUCINATION, AUDITORY
     Dosage: 2 MG 1QD PO
     Route: 048
     Dates: start: 20100901, end: 20110222
  3. LEVOTHYROXINE 25 MCG 1QD [Suspect]
  4. SIMVASTATIN [Suspect]
     Dosage: 80 MG 1 QD PO SEVERAL YEARS
     Route: 048

REACTIONS (1)
  - OEDEMA PERIPHERAL [None]
